FAERS Safety Report 7780004-1 (Version None)
Quarter: 2011Q3

REPORT INFORMATION
  Report Type: 
  Country: None (occurrence: None)
  Receive Date: 20110927
  Receipt Date: 20110913
  Transmission Date: 20111222
  Serious: No
  Sender: FDA-Public Use
  Company Number: US-JNJFOC-20110806149

PATIENT
  Sex: Male
  Weight: 101.61 kg

DRUGS (1)
  1. INVEGA SUSTENNA [Suspect]
     Indication: SCHIZOPHRENIA, PARANOID TYPE
     Route: 030
     Dates: start: 20110101, end: 20110601

REACTIONS (2)
  - HYPERSOMNIA [None]
  - WEIGHT INCREASED [None]
